FAERS Safety Report 9775360 (Version 1)
Quarter: 2013Q4

REPORT INFORMATION
  Report Type: Spontaneous
  Country: FR (occurrence: FR)
  Receive Date: 20131220
  Receipt Date: 20131220
  Transmission Date: 20140711
  Serious: Yes (Other)
  Sender: FDA-Public Use
  Company Number: FR-PFIZER INC-2013361840

PATIENT
  Age: 10 Month
  Sex: Male

DRUGS (8)
  1. RAPAMUNE [Suspect]
     Indication: STEM CELL TRANSPLANT
     Dosage: UNK
     Route: 048
     Dates: start: 201009, end: 201105
  2. NEORAL [Concomitant]
     Indication: STEM CELL TRANSPLANT
     Dosage: 10 MG, 2X/DAY
     Route: 048
     Dates: start: 20100913, end: 20110322
  3. NEORAL [Concomitant]
     Dosage: UNK
     Dates: start: 201108
  4. CORTANCYL [Concomitant]
  5. MOPRAL [Concomitant]
  6. BACTRIM [Concomitant]
  7. URSOFALK [Concomitant]
  8. L-THYROXIN [Concomitant]

REACTIONS (3)
  - Off label use [Unknown]
  - Pruritus [Recovered/Resolved]
  - Alopecia [Recovered/Resolved]
